FAERS Safety Report 7646706-2 (Version None)
Quarter: 2011Q3

REPORT INFORMATION
  Report Type: 
  Country: None (occurrence: None)
  Receive Date: 20110801
  Receipt Date: 20110722
  Transmission Date: 20111222
  Serious: Yes (Other)
  Sender: FDA-Public Use
  Company Number: AU-BAYER-2011-065496

PATIENT

DRUGS (1)
  1. MIRENA [Suspect]
     Dosage: UNK
     Route: 064

REACTIONS (4)
  - HEART DISEASE CONGENITAL [None]
  - TRICUSPID VALVE INCOMPETENCE [None]
  - PULMONARY ARTERIAL WEDGE PRESSURE DECREASED [None]
  - ATRIAL SEPTAL DEFECT [None]
